FAERS Safety Report 9214658 (Version 1)
Quarter: 2013Q1

REPORT INFORMATION
  Report Type: Spontaneous
  Country: US (occurrence: None)
  Receive Date: 20120827
  Receipt Date: 20120827
  Transmission Date: 20140127
  Serious: Yes (Other)
  Sender: FDA-Public Use
  Company Number: 354010

PATIENT
  Age: 54 Year
  Sex: Male
  Weight: 132.4 kg

DRUGS (7)
  1. VICTOZA (LIRAGLUTIDE) SOLUTION FOR INJECTION, 6MG/ML [Suspect]
     Indication: TYPE 2 DIABETES MELLITUS
     Route: 058
     Dates: start: 2012, end: 20120509
  2. AVODART (DUTASTERIDE) [Concomitant]
  3. LANTUS (INSULIN GLARGINE) [Concomitant]
  4. LOPRESSOR (METOPROLOL TARTRATE) [Concomitant]
  5. NIACIN (NICOTINIC ACID) [Concomitant]
  6. CIALIS (TADALAFIL) [Concomitant]
  7. VALSARTAN/HYDROCHLOROTHIAZIDE (HYDROCHLOROTHIAZIDE, VALSARTAN) [Concomitant]

REACTIONS (1)
  - Pancreatitis acute [None]
